FAERS Safety Report 19501960 (Version 3)
Quarter: 2021Q4

REPORT INFORMATION
  Report Type: Report from Study
  Country: CO (occurrence: CO)
  Receive Date: 20210707
  Receipt Date: 20211231
  Transmission Date: 20220303
  Serious: Yes (Hospitalization, Disabling, Other)
  Sender: FDA-Public Use
  Company Number: CO-NOVARTISPH-NVSC2020CO265065

PATIENT
  Age: 52 Year
  Sex: Female

DRUGS (5)
  1. JADENU [Suspect]
     Active Substance: DEFERASIROX
     Indication: Aplastic anaemia
     Dosage: 180 MG, QD
     Route: 048
  2. JADENU [Suspect]
     Active Substance: DEFERASIROX
     Dosage: 720 MG, QD
     Route: 048
     Dates: start: 20180918
  3. JADENU [Suspect]
     Active Substance: DEFERASIROX
     Dosage: UNK UNK, QD
     Route: 048
  4. HYDROXYUREA [Concomitant]
     Active Substance: HYDROXYUREA
     Indication: Iron overload
     Dosage: 500 MG, Q8H
     Route: 048
  5. FOLIC ACID [Concomitant]
     Active Substance: FOLIC ACID
     Indication: Iron overload
     Dosage: 10 MG
     Route: 048

REACTIONS (16)
  - Haemoglobin decreased [Recovering/Resolving]
  - Pneumonia [Unknown]
  - Gait disturbance [Unknown]
  - Aplastic anaemia [Unknown]
  - Pruritus [Unknown]
  - COVID-19 [Unknown]
  - Illness [Unknown]
  - Headache [Recovered/Resolved]
  - Malaise [Unknown]
  - Feeling hot [Recovered/Resolved]
  - General physical health deterioration [Unknown]
  - Product dose omission issue [Unknown]
  - Product availability issue [Unknown]
  - Oropharyngeal pain [Recovered/Resolved]
  - Pyrexia [Recovered/Resolved]
  - Asthenia [Unknown]

NARRATIVE: CASE EVENT DATE: 20200901
